FAERS Safety Report 17536419 (Version 9)
Quarter: 2021Q4

REPORT INFORMATION
  Report Type: Other
  Country: CA (occurrence: CA)
  Receive Date: 20200313
  Receipt Date: 20211021
  Transmission Date: 20220304
  Serious: Yes (Hospitalization, Other)
  Sender: FDA-Public Use
  Company Number: CA-ROCHE-1752620

PATIENT
  Age: 60 Year
  Sex: Female

DRUGS (26)
  1. RITUXAN [Suspect]
     Active Substance: RITUXIMAB
     Indication: Rheumatoid arthritis
     Dosage: INFUSION WAS ADMINISTERED ON 27/FEB/2020
     Route: 042
     Dates: start: 20160503
  2. RITUXAN [Suspect]
     Active Substance: RITUXIMAB
     Indication: Dermatomyositis
  3. PREDNISONE [Suspect]
     Active Substance: PREDNISONE
     Indication: Product used for unknown indication
     Route: 065
  4. SULFASALAZINE [Suspect]
     Active Substance: SULFASALAZINE
     Indication: Product used for unknown indication
     Route: 065
  5. CELLCEPT [Suspect]
     Active Substance: MYCOPHENOLATE MOFETIL\MYCOPHENOLATE MOFETIL HYDROCHLORIDE
     Indication: Dermatomyositis
     Route: 065
     Dates: start: 201409, end: 201501
  6. CELLCEPT [Suspect]
     Active Substance: MYCOPHENOLATE MOFETIL\MYCOPHENOLATE MOFETIL HYDROCHLORIDE
     Indication: Rheumatoid arthritis
  7. DIPHENHYDRAMINE HYDROCHLORIDE [Concomitant]
     Active Substance: DIPHENHYDRAMINE HYDROCHLORIDE
     Indication: Premedication
     Route: 048
     Dates: start: 20160503
  8. ACETAMINOPHEN [Concomitant]
     Active Substance: ACETAMINOPHEN
     Indication: Premedication
     Route: 048
     Dates: start: 20160503
  9. METHYLPREDNISOLONE [Concomitant]
     Active Substance: METHYLPREDNISOLONE
     Indication: Premedication
     Route: 042
     Dates: start: 20160503
  10. ZANTAC [Concomitant]
     Active Substance: RANITIDINE HYDROCHLORIDE
  11. PRUCALOPRIDE SUCCINATE [Concomitant]
     Active Substance: PRUCALOPRIDE SUCCINATE
  12. PROLIA [Concomitant]
     Active Substance: DENOSUMAB
  13. PANTOPRAZOLE MAGNESIUM [Concomitant]
     Active Substance: PANTOPRAZOLE MAGNESIUM
  14. VALSARTAN [Concomitant]
     Active Substance: VALSARTAN
  15. DIOVAN [Concomitant]
     Active Substance: VALSARTAN
  16. ADALAT [Concomitant]
     Active Substance: NIFEDIPINE
  17. EZETIMIBE [Concomitant]
     Active Substance: EZETIMIBE
  18. BACTRIM [Concomitant]
     Active Substance: SULFAMETHOXAZOLE\TRIMETHOPRIM
  19. ELAVIL [Concomitant]
     Active Substance: AMITRIPTYLINE HYDROCHLORIDE
  20. FLUCONAZOLE [Concomitant]
     Active Substance: FLUCONAZOLE
  21. VAGIFEM [Concomitant]
     Active Substance: ESTRADIOL
  22. CYCLOPHOSPHAMIDE [Concomitant]
     Active Substance: CYCLOPHOSPHAMIDE
  23. LIDOCAINE [Concomitant]
     Active Substance: LIDOCAINE
  24. SULFASALAZINE [Concomitant]
     Active Substance: SULFASALAZINE
     Route: 048
  25. ACETAMINOPHEN\TRAMADOL [Concomitant]
     Active Substance: ACETAMINOPHEN\TRAMADOL
  26. FAMOTIDINE [Concomitant]
     Active Substance: FAMOTIDINE

REACTIONS (55)
  - Osteoporosis [Not Recovered/Not Resolved]
  - Lip pruritus [Recovered/Resolved]
  - Gastrointestinal disorder [Not Recovered/Not Resolved]
  - Heart rate increased [Unknown]
  - Arthralgia [Unknown]
  - Pharyngeal disorder [Recovered/Resolved]
  - C-reactive protein increased [Unknown]
  - Red blood cell count decreased [Unknown]
  - Haematocrit decreased [Unknown]
  - Haemoglobin decreased [Unknown]
  - Drug ineffective [Unknown]
  - Musculoskeletal stiffness [Not Recovered/Not Resolved]
  - Arthropathy [Not Recovered/Not Resolved]
  - Poikiloderma [Unknown]
  - Dyspnoea exertional [Unknown]
  - Pyrexia [Unknown]
  - Muscle tightness [Not Recovered/Not Resolved]
  - Rotator cuff syndrome [Not Recovered/Not Resolved]
  - Rheumatoid arthritis [Not Recovered/Not Resolved]
  - Joint range of motion decreased [Unknown]
  - Heliotrope rash [Unknown]
  - Skin ulcer [Unknown]
  - Dermatomyositis [Unknown]
  - Treatment failure [Unknown]
  - Interstitial lung disease [Unknown]
  - Arthralgia [Unknown]
  - Dyspepsia [Unknown]
  - Crepitations [Unknown]
  - Respiratory tract infection [Unknown]
  - Urinary tract infection [Unknown]
  - Fatigue [Unknown]
  - Back pain [Unknown]
  - Leukopenia [Unknown]
  - Intervertebral disc degeneration [Unknown]
  - Spondylolisthesis [Unknown]
  - Heart rate increased [Unknown]
  - Sciatica [Unknown]
  - Off label use [Unknown]
  - Intentional dose omission [Unknown]
  - Sleep apnoea syndrome [Unknown]
  - Weight increased [Unknown]
  - Tachycardia [Unknown]
  - Pancytopenia [Unknown]
  - Anaemia [Unknown]
  - Iron binding capacity total decreased [Unknown]
  - Transferrin decreased [Unknown]
  - Haemoglobin decreased [Unknown]
  - Cough [Unknown]
  - Rash [Recovered/Resolved]
  - Pain [Unknown]
  - Blister [Recovering/Resolving]
  - Dry skin [Unknown]
  - Eczema [Unknown]
  - Blood pressure systolic increased [Unknown]
  - Blood pressure systolic abnormal [Unknown]

NARRATIVE: CASE EVENT DATE: 20160101
